FAERS Safety Report 20570637 (Version 2)
Quarter: 2023Q1

REPORT INFORMATION
  Report Type: Spontaneous
  Country: FR (occurrence: FR)
  Receive Date: 20220309
  Receipt Date: 20230215
  Transmission Date: 20230417
  Serious: Yes (Death)
  Sender: FDA-Public Use
  Company Number: None

PATIENT
  Age: 45 Year
  Sex: Male

DRUGS (1)
  1. PREGABALIN [Suspect]
     Active Substance: PREGABALIN
     Indication: Product used for unknown indication
     Dosage: UNKNOWN; THERAPY START DATE: NOT ASKED
     Route: 065
     Dates: end: 202202

REACTIONS (4)
  - Acute respiratory distress syndrome [Fatal]
  - Depressed level of consciousness [Fatal]
  - Aspiration [Fatal]
  - Drug dependence [Fatal]
